FAERS Safety Report 25269410 (Version 2)
Quarter: 2025Q2

REPORT INFORMATION
  Report Type: Spontaneous
  Country: BE (occurrence: BE)
  Receive Date: 20250505
  Receipt Date: 20250515
  Transmission Date: 20250717
  Serious: Yes (Death, Hospitalization)
  Sender: TEVA
  Company Number: BE-TEVA-VS-3327475

PATIENT
  Age: 37 Year
  Sex: Female

DRUGS (15)
  1. ETOPOSIDE [Suspect]
     Active Substance: ETOPOSIDE
     Indication: Gestational trophoblastic tumour
     Route: 065
     Dates: start: 20230517, end: 202305
  2. ETOPOSIDE [Suspect]
     Active Substance: ETOPOSIDE
     Indication: Gestational trophoblastic tumour
     Route: 065
     Dates: start: 20230606, end: 202306
  3. ETOPOSIDE [Suspect]
     Active Substance: ETOPOSIDE
     Indication: Gestational trophoblastic tumour
     Route: 065
     Dates: start: 20230524, end: 2023
  4. FILGRASTIM [Concomitant]
     Active Substance: FILGRASTIM
     Indication: Febrile neutropenia
     Route: 065
     Dates: start: 2023
  5. PEMBROLIZUMAB [Suspect]
     Active Substance: PEMBROLIZUMAB
     Indication: Gestational trophoblastic tumour
     Route: 065
     Dates: start: 20240205
  6. PEMBROLIZUMAB [Suspect]
     Active Substance: PEMBROLIZUMAB
     Indication: Gestational trophoblastic tumour
     Route: 065
     Dates: start: 20240115
  7. CARBOPLATIN [Suspect]
     Active Substance: CARBOPLATIN
     Indication: Gestational trophoblastic tumour
     Route: 065
     Dates: start: 20231218
  8. CARBOPLATIN [Suspect]
     Active Substance: CARBOPLATIN
     Indication: Gestational trophoblastic tumour
     Route: 065
     Dates: start: 20240108
  9. CARBOPLATIN [Suspect]
     Active Substance: CARBOPLATIN
     Indication: Gestational trophoblastic tumour
     Route: 065
     Dates: start: 20231226
  10. CARBOPLATIN [Suspect]
     Active Substance: CARBOPLATIN
     Indication: Gestational trophoblastic tumour
     Route: 065
     Dates: start: 20231211
  11. CARBOPLATIN [Suspect]
     Active Substance: CARBOPLATIN
     Indication: Gestational trophoblastic tumour
     Route: 065
     Dates: start: 20240102
  12. CEFEPIME [Concomitant]
     Active Substance: CEFEPIME HYDROCHLORIDE
     Indication: Antibiotic therapy
     Route: 065
     Dates: start: 2023, end: 2023
  13. CISPLATIN [Suspect]
     Active Substance: CISPLATIN
     Indication: Gestational trophoblastic tumour
     Route: 065
     Dates: start: 20230517, end: 202305
  14. CISPLATIN [Suspect]
     Active Substance: CISPLATIN
     Indication: Gestational trophoblastic tumour
     Route: 065
     Dates: start: 20230606, end: 202306
  15. CISPLATIN [Suspect]
     Active Substance: CISPLATIN
     Indication: Gestational trophoblastic tumour
     Route: 065
     Dates: start: 20230524, end: 2023

REACTIONS (4)
  - Drug ineffective [Fatal]
  - Drug ineffective for unapproved indication [Fatal]
  - Febrile neutropenia [Unknown]
  - Haemophagocytic lymphohistiocytosis [Unknown]

NARRATIVE: CASE EVENT DATE: 20230101
